FAERS Safety Report 25757102 (Version 1)
Quarter: 2025Q3

REPORT INFORMATION
  Report Type: Report from Study
  Country: CA (occurrence: CA)
  Receive Date: 20250903
  Receipt Date: 20250903
  Transmission Date: 20251020
  Serious: Yes (Death)
  Sender: PFIZER
  Company Number: CA-PFIZER INC-202500174446

PATIENT
  Age: 83 Year
  Sex: Female

DRUGS (7)
  1. METHOTREXATE SODIUM [Suspect]
     Active Substance: METHOTREXATE SODIUM
     Route: 065
  2. CERTOLIZUMAB PEGOL [Suspect]
     Active Substance: CERTOLIZUMAB PEGOL
     Indication: Rheumatoid arthritis
     Route: 058
  3. CERTOLIZUMAB PEGOL [Suspect]
     Active Substance: CERTOLIZUMAB PEGOL
     Indication: Rheumatoid arthritis
     Route: 058
  4. ATENOLOL [Concomitant]
     Active Substance: ATENOLOL
     Dosage: 150 MG, 4X/DAY (4 EVERY 1 DAYS)
     Route: 048
  5. MICARDIS [Concomitant]
     Active Substance: TELMISARTAN
     Dosage: 80 MG, 1X/DAY (1 EVERY 1 DAYS)
     Route: 048
  6. MICARDIS [Concomitant]
     Active Substance: TELMISARTAN
     Route: 065
  7. TYLENOL [Concomitant]
     Active Substance: ACETAMINOPHEN
     Route: 048

REACTIONS (3)
  - Death [Fatal]
  - Urinary tract infection [Fatal]
  - Product dose omission issue [Fatal]
